FAERS Safety Report 9720559 (Version 1)
Quarter: 2013Q4

REPORT INFORMATION
  Report Type: Spontaneous
  Country: US (occurrence: US)
  Receive Date: 20131129
  Receipt Date: 20131129
  Transmission Date: 20140711
  Serious: Yes (Other)
  Sender: FDA-Public Use
  Company Number: US-DRREDDYS-USA/USA/13/0035954

PATIENT
  Age: 37 Year
  Sex: Female

DRUGS (2)
  1. OLANZAPINE FILM-COATED TABLET [Suspect]
     Indication: WEIGHT GAIN POOR
     Route: 065
  2. OLANZAPINE FILM-COATED TABLET [Suspect]
     Indication: ANOREXIA NERVOSA

REACTIONS (2)
  - Acute hepatic failure [Recovering/Resolving]
  - Off label use [Unknown]
